FAERS Safety Report 4330821-5 (Version None)
Quarter: 2004Q1

REPORT INFORMATION
  Report Type: 
  Country: None (occurrence: None)
  Receive Date: 20040331
  Receipt Date: 20040317
  Transmission Date: 20041129
  Serious: Yes (Death, Hospitalization, Other)
  Sender: FDA-Public Use
  Company Number: USA031049814

PATIENT
  Age: 90 Year
  Sex: Female
  Weight: 54 kg

DRUGS (2)
  1. FORTEO [Suspect]
     Indication: OSTEOPOROSIS
     Dosage: 20 UG/1 DAY
     Dates: start: 20021218, end: 20040118
  2. FOSAMAX [Concomitant]

REACTIONS (6)
  - CEREBROVASCULAR ACCIDENT [None]
  - COMA [None]
  - CONVULSION [None]
  - HEMIPARESIS [None]
  - PHARMACEUTICAL PRODUCT COMPLAINT [None]
  - TRANSIENT ISCHAEMIC ATTACK [None]
